FAERS Safety Report 6076586-0 (Version None)
Quarter: 2009Q1

REPORT INFORMATION
  Report Type: 
  Country: None (occurrence: None)
  Receive Date: 20090213
  Receipt Date: 20090202
  Transmission Date: 20090719
  Serious: Yes (Hospitalization)
  Sender: FDA-Public Use
  Company Number: JP-JNJFOC-20090201601

PATIENT
  Sex: Female
  Weight: 45 kg

DRUGS (16)
  1. REMICADE [Suspect]
     Indication: RHEUMATOID ARTHRITIS
     Route: 042
  2. RHEUMATREX [Suspect]
     Indication: RHEUMATOID ARTHRITIS
     Route: 048
  3. CALCONAL [Concomitant]
     Indication: PROPHYLAXIS
     Route: 048
  4. CELESTAMINE TAB [Concomitant]
     Indication: PROPHYLAXIS
     Route: 048
  5. SOLU-CORTEF [Concomitant]
     Indication: PROPHYLAXIS
  6. PREDNISONE [Concomitant]
     Route: 048
  7. CYTOTEC [Concomitant]
     Route: 048
  8. CLINORIL [Concomitant]
     Route: 048
  9. SELTOUCH [Concomitant]
     Route: 048
  10. ALFAROL [Concomitant]
     Route: 048
  11. PARIET [Concomitant]
     Route: 048
  12. ACARBOSE [Concomitant]
     Route: 048
  13. FASTIC [Concomitant]
     Route: 048
  14. CALONAL [Concomitant]
     Indication: PREMEDICATION
  15. CELESTAMINE TAB [Concomitant]
     Indication: PREMEDICATION
  16. SOLU-CORTEF [Concomitant]
     Indication: PREMEDICATION

REACTIONS (1)
  - BONE MARROW FAILURE [None]
